FAERS Safety Report 18417446 (Version 1)
Quarter: 2020Q4

REPORT INFORMATION
  Report Type: Spontaneous
  Country: US (occurrence: US)
  Receive Date: 20201022
  Receipt Date: 20201022
  Transmission Date: 20210114
  Serious: No
  Sender: FDA-Public Use
  Company Number: US-SEATTLE GENETICS-2020SGN04006

PATIENT
  Sex: Female

DRUGS (1)
  1. TUKYSA [Suspect]
     Active Substance: TUCATINIB
     Indication: BREAST CANCER METASTATIC
     Dosage: 150 MG, UNK
     Route: 048

REACTIONS (6)
  - Nausea [Unknown]
  - Diarrhoea [Unknown]
  - Dizziness [Unknown]
  - Stomatitis [Unknown]
  - Feeling hot [Unknown]
  - Wound [Unknown]
